FAERS Safety Report 10616000 (Version 1)
Quarter: 2014Q4

REPORT INFORMATION
  Report Type: Spontaneous
  Country: US (occurrence: None)
  Receive Date: 20141125
  Receipt Date: 20141125
  Transmission Date: 20150529
  Serious: Yes (Other)
  Sender: FDA-Public Use
  Company Number: None

PATIENT
  Age: 73 Year
  Sex: Male
  Weight: 70.31 kg

DRUGS (1)
  1. MAGNESIUM OXIDE. [Suspect]
     Active Substance: MAGNESIUM OXIDE
     Indication: BLOOD MAGNESIUM DECREASED
     Dosage: 1 TABLET
     Route: 048
     Dates: start: 20141103, end: 20141106

REACTIONS (2)
  - Foreign body [None]
  - Oropharyngeal pain [None]

NARRATIVE: CASE EVENT DATE: 20141106
